FAERS Safety Report 12740845 (Version 1)
Quarter: 2016Q3

REPORT INFORMATION
  Report Type: Spontaneous
  Country: US (occurrence: US)
  Receive Date: 20160914
  Receipt Date: 20160914
  Transmission Date: 20161109
  Serious: No
  Sender: FDA-Public Use
  Company Number: US-TEVA-651906USA

PATIENT
  Age: 62 Year
  Sex: Male
  Weight: 73.55 kg

DRUGS (6)
  1. ATORVASTATIN (MYLAN) [Suspect]
     Active Substance: ATORVASTATIN
     Indication: BLOOD CHOLESTEROL
     Dosage: 40 MILLIGRAM DAILY;
     Route: 048
  2. NIACIN (LUPIN) [Suspect]
     Active Substance: NIACIN
     Indication: BLOOD CHOLESTEROL
     Dosage: 1000 MILLIGRAM DAILY;
     Route: 048
  3. OMEGA 3 [Suspect]
     Active Substance: CAPSAICIN
     Indication: BLOOD CHOLESTEROL
     Dosage: 2 GRAM DAILY;
     Route: 048
  4. FLUOXETINE [Suspect]
     Active Substance: FLUOXETINE HYDROCHLORIDE
     Indication: ANXIETY
     Dosage: 40 MILLIGRAM DAILY;
     Route: 048
  5. AMLODIPINE BESYLATE (CAMBER) [Suspect]
     Active Substance: AMLODIPINE BESYLATE
     Indication: BLOOD PRESSURE MEASUREMENT
     Dosage: 5 MILLIGRAM DAILY;
     Route: 048
  6. LISINOPRIL (LUPIN) [Suspect]
     Active Substance: LISINOPRIL
     Indication: BLOOD PRESSURE MEASUREMENT
     Dosage: 40 MILLIGRAM DAILY;
     Route: 048

REACTIONS (3)
  - Blood cholesterol increased [Not Recovered/Not Resolved]
  - Product substitution issue [Unknown]
  - Blood triglycerides increased [Not Recovered/Not Resolved]

NARRATIVE: CASE EVENT DATE: 201603
